FAERS Safety Report 16219460 (Version 1)
Quarter: 2019Q2

REPORT INFORMATION
  Report Type: Spontaneous
  Country: DE (occurrence: DE)
  Receive Date: 20190420
  Receipt Date: 20190420
  Transmission Date: 20190711
  Serious: Yes (Other)
  Sender: FDA-Public Use
  Company Number: DE-AMGEN-DEUSP2019063124

PATIENT
  Sex: Male

DRUGS (1)
  1. AIMOVIG [Suspect]
     Active Substance: ERENUMAB-AOOE
     Indication: PRODUCT USED FOR UNKNOWN INDICATION
     Dosage: UNK
     Route: 065
     Dates: start: 20180622, end: 20190329

REACTIONS (6)
  - Visual impairment [Unknown]
  - Cerebral disorder [Unknown]
  - Fatigue [Unknown]
  - Angina pectoris [Unknown]
  - Coronary artery disease [Unknown]
  - Tinnitus [Unknown]

NARRATIVE: CASE EVENT DATE: 20190101
